FAERS Safety Report 7383707-6 (Version None)
Quarter: 2011Q1

REPORT INFORMATION
  Report Type: 
  Country: None (occurrence: None)
  Receive Date: 20110330
  Receipt Date: 20110329
  Transmission Date: 20110831
  Serious: Yes (Death)
  Sender: FDA-Public Use
  Company Number: MX-ROCHE-764646

PATIENT
  Age: 37 Year
  Sex: Female

DRUGS (5)
  1. COPEGUS [Suspect]
     Route: 048
     Dates: start: 20100910, end: 20110218
  2. ANTIBIOTIC NOS [Concomitant]
  3. PREDNISONE [Concomitant]
  4. PEGASYS [Suspect]
     Route: 058
     Dates: start: 20100910, end: 20110218
  5. SULPHONAMIDE [Concomitant]

REACTIONS (5)
  - DEHYDRATION [None]
  - DERMATITIS EXFOLIATIVE [None]
  - RENAL FAILURE ACUTE [None]
  - ILEUS PARALYTIC [None]
  - DIARRHOEA [None]
